FAERS Safety Report 10961085 (Version 1)
Quarter: 2015Q1

REPORT INFORMATION
  Report Type: Spontaneous
  Country: US (occurrence: None)
  Receive Date: 20150326
  Receipt Date: 20150326
  Transmission Date: 20150721
  Serious: Yes (Disabling)
  Sender: FDA-Public Use
  Company Number: None

PATIENT
  Age: 70 Year
  Sex: Female
  Weight: 88.45 kg

DRUGS (5)
  1. CARVEDILOL. [Concomitant]
     Active Substance: CARVEDILOL
  2. CLONAZEPAM. [Concomitant]
     Active Substance: CLONAZEPAM
  3. LIPITOR [Concomitant]
     Active Substance: ATORVASTATIN CALCIUM
  4. LEVOTHYROXIN [Concomitant]
     Active Substance: LEVOTHYROXINE
  5. NAMENDA [Suspect]
     Active Substance: MEMANTINE HYDROCHLORIDE
     Indication: DEMENTIA
     Dosage: 2 PILLS
     Route: 048

REACTIONS (41)
  - Urine output decreased [None]
  - Depression [None]
  - Asthenia [None]
  - Hypertension [None]
  - Musculoskeletal stiffness [None]
  - Irritability [None]
  - Dysphagia [None]
  - Gait disturbance [None]
  - Urine odour abnormal [None]
  - Pruritus [None]
  - Clumsiness [None]
  - Dyspnoea [None]
  - Pain [None]
  - Balance disorder [None]
  - Restlessness [None]
  - Headache [None]
  - Vision blurred [None]
  - Peripheral swelling [None]
  - Bladder pain [None]
  - Decreased interest [None]
  - Nervousness [None]
  - Libido decreased [None]
  - Abdominal discomfort [None]
  - Mood altered [None]
  - Agitation [None]
  - Chills [None]
  - Dry mouth [None]
  - Insomnia [None]
  - Somnolence [None]
  - Dizziness [None]
  - Syncope [None]
  - Anxiety [None]
  - Back pain [None]
  - Micturition urgency [None]
  - Abnormal behaviour [None]
  - Paraesthesia [None]
  - Chromaturia [None]
  - Fatigue [None]
  - Cough [None]
  - Arthralgia [None]
  - Disturbance in attention [None]

NARRATIVE: CASE EVENT DATE: 20150101
